FAERS Safety Report 25172434 (Version 2)
Quarter: 2025Q2

REPORT INFORMATION
  Report Type: Report from Study
  Country: US (occurrence: US)
  Receive Date: 20250408
  Receipt Date: 20250526
  Transmission Date: 20250717
  Serious: No
  Sender: JAZZ
  Company Number: US-JAZZ-2022-US-020661

PATIENT
  Sex: Female

DRUGS (7)
  1. XYREM [Suspect]
     Active Substance: SODIUM OXYBATE
     Indication: Narcolepsy
     Dosage: 2.75 GRAM, BID
  2. PERCOCET [Concomitant]
     Active Substance: ACETAMINOPHEN\OXYCODONE HYDROCHLORIDE
     Dates: start: 20220615
  3. TYLENOL EXTRA STRENGTH [Concomitant]
     Active Substance: ACETAMINOPHEN
     Dates: start: 20220615
  4. AUGMENTIN [Concomitant]
     Active Substance: AMOXICILLIN\CLAVULANATE POTASSIUM
     Dates: start: 20250311
  5. TRAMADOL HCL [Concomitant]
     Active Substance: TRAMADOL HYDROCHLORIDE
     Dates: start: 20250311
  6. MAGNESIUM [Concomitant]
     Active Substance: MAGNESIUM
     Dates: start: 20250311
  7. LINZESS [Concomitant]
     Active Substance: LINACLOTIDE
     Dates: start: 20240318

REACTIONS (6)
  - Foot operation [Unknown]
  - Rash [Unknown]
  - Weight decreased [Unknown]
  - Sleep apnoea syndrome [Unknown]
  - Product administration interrupted [Unknown]
  - Product dose omission issue [Unknown]
